FAERS Safety Report 21746801 (Version 3)
Quarter: 2023Q1

REPORT INFORMATION
  Report Type: Spontaneous
  Country: US (occurrence: US)
  Receive Date: 20221219
  Receipt Date: 20230317
  Transmission Date: 20230418
  Serious: No
  Sender: FDA-Public Use
  Company Number: US-SA-SAC20221213001485

PATIENT
  Age: 48 Year
  Sex: Female

DRUGS (1)
  1. DUPIXENT [Suspect]
     Active Substance: DUPILUMAB
     Indication: Neurodermatitis
     Dosage: 300 MG; QOW
     Route: 058
     Dates: start: 202211

REACTIONS (6)
  - Upper-airway cough syndrome [Unknown]
  - Diarrhoea [Unknown]
  - Fungal infection [Unknown]
  - Abdominal discomfort [Unknown]
  - Abdominal pain [Unknown]
  - Injection site bruising [Unknown]

NARRATIVE: CASE EVENT DATE: 20221205
